FAERS Safety Report 8193260-5 (Version None)
Quarter: 2012Q1

REPORT INFORMATION
  Report Type: 
  Country: None (occurrence: None)
  Receive Date: 20120308
  Receipt Date: 20120301
  Transmission Date: 20120608
  Serious: Yes (Other)
  Sender: FDA-Public Use
  Company Number: US-NOVOPROD-346282

PATIENT
  Age: 46 Year
  Sex: Female

DRUGS (3)
  1. LANTUS [Suspect]
     Dosage: 30 U, BID
     Route: 058
     Dates: start: 20090101
  2. NOVOLOG [Suspect]
     Indication: DIABETES MELLITUS
     Dosage: UNKNOWN
     Route: 058
  3. LANTUS [Suspect]
     Indication: DIABETES MELLITUS
     Dosage: UNKNOWN
     Route: 058
     Dates: start: 20070101

REACTIONS (2)
  - BLINDNESS [None]
  - CONDITION AGGRAVATED [None]
